FAERS Safety Report 8990688 (Version 1)
Quarter: 2012Q4

REPORT INFORMATION
  Report Type: 
  Country: BE (occurrence: BE)
  Receive Date: 20121228
  Receipt Date: 20121228
  Transmission Date: 20130627
  Serious: Yes (Other)
  Sender: FDA-Public Use
  Company Number: BE-ROCHE-1142950

PATIENT
  Age: 60 Year
  Sex: Male
  Weight: 70 kg

DRUGS (13)
  1. NELFINAVIR [Suspect]
     Indication: ANTIRETROVIRAL THERAPY
     Route: 065
     Dates: start: 200401, end: 200508
  2. NELFINAVIR [Interacting]
     Route: 065
     Dates: start: 20060811
  3. SAQUINAVIR [Interacting]
     Indication: ANTIRETROVIRAL THERAPY
     Route: 065
     Dates: start: 200501, end: 200508
  4. ZIDOVUDINE [Interacting]
     Indication: ANTIRETROVIRAL THERAPY
     Route: 065
     Dates: start: 200401, end: 200508
  5. LAMIVUDINE [Interacting]
     Indication: ANTIRETROVIRAL THERAPY
     Route: 065
     Dates: start: 200401, end: 200508
  6. LAMIVUDINE [Interacting]
     Route: 065
     Dates: start: 200508, end: 20051028
  7. TENOFOVIR [Interacting]
     Indication: ANTIRETROVIRAL THERAPY
     Route: 065
     Dates: start: 200508, end: 20051028
  8. TENOFOVIR [Interacting]
     Route: 065
     Dates: start: 20060811
  9. EMTRICITABINE [Interacting]
     Indication: ANTIRETROVIRAL THERAPY
     Route: 065
     Dates: start: 20060811
  10. ATAZANAVIR [Interacting]
     Indication: ANTIRETROVIRAL THERAPY
     Route: 065
     Dates: start: 200508, end: 20051028
  11. SALMETEROL XINAFOATE/FLUTICASONE PROPIONATE [Interacting]
     Indication: CHRONIC OBSTRUCTIVE PULMONARY DISEASE
     Route: 055
  12. RITONAVIR [Interacting]
     Indication: ANTIRETROVIRAL THERAPY
     Route: 065
     Dates: start: 200508, end: 20051028
  13. BUDESONIDE/FORMOTEROL FUMARATE [Suspect]
     Indication: CHRONIC OBSTRUCTIVE PULMONARY DISEASE
     Dosage: 160 ug/4.5 ug
     Route: 055

REACTIONS (8)
  - Diarrhoea [Unknown]
  - Drug interaction [Unknown]
  - Cushing^s syndrome [Unknown]
  - Gynaecomastia [Unknown]
  - Face oedema [Unknown]
  - Herpes simplex [Unknown]
  - Blood cortisol decreased [Unknown]
  - Blood corticotrophin decreased [Unknown]
